FAERS Safety Report 7487690-4 (Version None)
Quarter: 2011Q2

REPORT INFORMATION
  Report Type: 
  Country: None (occurrence: None)
  Receive Date: 20110511
  Receipt Date: 20110426
  Transmission Date: 20111010
  Serious: Yes (Hospitalization)
  Sender: FDA-Public Use
  Company Number: 2011SP001387

PATIENT
  Age: 15 Year
  Sex: Male
  Weight: 55 kg

DRUGS (1)
  1. ALVESCO [Suspect]
     Indication: ASTHMA
     Dosage: 80 UG;QD;INHALATION
     Route: 055
     Dates: start: 20110201

REACTIONS (1)
  - PNEUMOTHORAX [None]
